FAERS Safety Report 14664734 (Version 1)
Quarter: 2018Q1

REPORT INFORMATION
  Report Type: Spontaneous
  Country: US (occurrence: US)
  Receive Date: 20180321
  Receipt Date: 20180321
  Transmission Date: 20180509
  Serious: No
  Sender: FDA-Public Use
  Company Number: US-PFIZER INC-2018113657

PATIENT
  Age: 8 Decade
  Sex: Female

DRUGS (1)
  1. ZITHROMAX [Suspect]
     Active Substance: AZITHROMYCIN DIHYDRATE
     Indication: ATYPICAL PNEUMONIA
     Dosage: UNK
     Dates: start: 20171223

REACTIONS (3)
  - White blood cell count decreased [Unknown]
  - Palpitations [Recovering/Resolving]
  - Dizziness [Unknown]
